FAERS Safety Report 11324236 (Version 1)
Quarter: 2015Q3

REPORT INFORMATION
  Report Type: Spontaneous
  Country: US (occurrence: US)
  Receive Date: 20150730
  Receipt Date: 20150730
  Transmission Date: 20151125
  Serious: No
  Sender: FDA-Public Use
  Company Number: US-BAYER-2015-389772

PATIENT
  Age: 81 Year
  Sex: Female
  Weight: 76 kg

DRUGS (4)
  1. BAYER WOMEN^S LOW DOSE ASPIRIN 81 MG WITH CALCIUM [Concomitant]
     Dosage: UNK UNK, QD
     Route: 048
  2. MIRALAX [Suspect]
     Active Substance: POLYETHYLENE GLYCOL 3350
     Indication: CONSTIPATION
     Dosage: A CAPFUL, QD
     Route: 048
     Dates: start: 2014
  3. MORPHINE [Concomitant]
     Active Substance: MORPHINE
     Dosage: UNK
  4. MIRALAX [Suspect]
     Active Substance: POLYETHYLENE GLYCOL 3350
     Indication: CONSTIPATION
     Dosage: 1 DOSE, QD
     Route: 048
     Dates: start: 2013

REACTIONS (1)
  - Product use issue [Unknown]
